FAERS Safety Report 5042542-4 (Version None)
Quarter: 2006Q2

REPORT INFORMATION
  Report Type: 
  Country: None (occurrence: None)
  Receive Date: 20060627
  Receipt Date: 20060614
  Transmission Date: 20061013
  Serious: Yes (Hospitalization)
  Sender: FDA-Public Use
  Company Number: 2006076086

PATIENT

DRUGS (1)
  1. SULFASALAZINE [Suspect]
     Indication: ILL-DEFINED DISORDER

REACTIONS (1)
  - INTERSTITIAL LUNG DISEASE [None]
